FAERS Safety Report 6699492-7 (Version None)
Quarter: 2010Q2

REPORT INFORMATION
  Report Type: 
  Country: None (occurrence: None)
  Receive Date: 20100426
  Receipt Date: 20100407
  Transmission Date: 20101027
  Serious: Yes (Disabling)
  Sender: FDA-Public Use
  Company Number: JP-SOLVAY-00310000630

PATIENT
  Sex: Female

DRUGS (6)
  1. LUVOX [Suspect]
     Indication: DEPRESSION
     Dosage: 1 DOSAGE FORM
     Route: 048
     Dates: start: 20091003, end: 20091119
  2. LUVOX [Suspect]
     Indication: DEPRESSION
     Dosage: 1 DOSAGE FORM
     Route: 048
     Dates: start: 20091120
  3. ARICEPT [Suspect]
     Indication: DRUG USE FOR UNKNOWN INDICATION
     Dates: start: 20090916
  4. NORVASC [Concomitant]
  5. CANDESARTAN CILEXETIL [Concomitant]
  6. DOGMATYL (SULPIRIDE) [Concomitant]

REACTIONS (3)
  - ARTHRALGIA [None]
  - CHONDROLYSIS [None]
  - GAIT DISTURBANCE [None]
